FAERS Safety Report 7971486-0 (Version None)
Quarter: 2011Q4

REPORT INFORMATION
  Report Type: 
  Country: None (occurrence: None)
  Receive Date: 20111212
  Receipt Date: 20111201
  Transmission Date: 20120403
  Serious: Yes (Other)
  Sender: FDA-Public Use
  Company Number: TW-BAXTER-2011BH037857

PATIENT
  Sex: Male

DRUGS (4)
  1. EXTRANEAL [Suspect]
     Indication: PERITONEAL DIALYSIS
     Route: 033
     Dates: start: 20110201, end: 20110101
  2. EXTRANEAL [Suspect]
     Route: 033
     Dates: start: 20110201, end: 20110101
  3. DIANEAL [Suspect]
     Indication: PERITONEAL DIALYSIS
     Route: 033
     Dates: start: 20110201, end: 20110101
  4. DIANEAL [Suspect]
     Route: 033
     Dates: start: 20110201, end: 20110101

REACTIONS (1)
  - FUNGAL PERITONITIS [None]
